FAERS Safety Report 21946809 (Version 3)
Quarter: 2023Q1

REPORT INFORMATION
  Report Type: Report from Study
  Country: CO (occurrence: CO)
  Receive Date: 20230202
  Receipt Date: 20230313
  Transmission Date: 20230418
  Serious: Yes (Hospitalization, Other)
  Sender: FDA-Public Use
  Company Number: CO-BAYER-2023A009810

PATIENT
  Age: 54 Year
  Sex: Female

DRUGS (1)
  1. ADEMPAS [Suspect]
     Active Substance: RIOCIGUAT
     Indication: Pulmonary arterial hypertension
     Dosage: 1.5 MG, Q8HR
     Route: 048
     Dates: start: 20220814

REACTIONS (7)
  - Arterial injury [Not Recovered/Not Resolved]
  - Flatulence [Not Recovered/Not Resolved]
  - Lung disorder [Not Recovered/Not Resolved]
  - Hypertension [None]
  - Pulmonary artery therapeutic procedure [Recovering/Resolving]
  - Intracardiac thrombus [Recovering/Resolving]
  - Thrombectomy [None]

NARRATIVE: CASE EVENT DATE: 20220923
